FAERS Safety Report 10166711 (Version 3)
Quarter: 2014Q2

REPORT INFORMATION
  Report Type: Report from Study
  Country: CR (occurrence: CR)
  Receive Date: 20140512
  Receipt Date: 20140523
  Transmission Date: 20141212
  Serious: Yes (Death, Hospitalization)
  Sender: FDA-Public Use
  Company Number: CR-US-EMD SERONO, INC.-7291190

PATIENT
  Sex: Male

DRUGS (1)
  1. REBIF [Suspect]
     Indication: MULTIPLE SCLEROSIS
     Dosage: 44 (UNITS NOT REPORTED)
     Route: 058
     Dates: start: 20120817

REACTIONS (2)
  - Intestinal obstruction [Fatal]
  - Cardiovascular disorder [Fatal]
